FAERS Safety Report 22874289 (Version 2)
Quarter: 2023Q4

REPORT INFORMATION
  Report Type: Report from Study
  Country: BR (occurrence: BR)
  Receive Date: 20230828
  Receipt Date: 20231031
  Transmission Date: 20240110
  Serious: Yes (Death, Hospitalization)
  Sender: FDA-Public Use
  Company Number: BR-JNJFOC-20230851759

PATIENT
  Age: 77 Year
  Sex: Female
  Weight: 48 kg

DRUGS (13)
  1. AMIVANTAMAB [Suspect]
     Active Substance: AMIVANTAMAB
     Indication: Non-small cell lung cancer
     Dosage: 25R VIAL
     Route: 058
     Dates: start: 20230517, end: 20230815
  2. PREGABALIN [Concomitant]
     Active Substance: PREGABALIN
     Indication: Arthralgia
     Route: 048
     Dates: start: 20190901
  3. PREGABALIN [Concomitant]
     Active Substance: PREGABALIN
     Indication: Back pain
  4. PREGABALIN [Concomitant]
     Active Substance: PREGABALIN
     Indication: Arthralgia
  5. DULOXETINE [Concomitant]
     Active Substance: DULOXETINE
     Indication: Arthralgia
     Route: 048
     Dates: start: 20221101
  6. DULOXETINE [Concomitant]
     Active Substance: DULOXETINE
     Indication: Back pain
  7. DULOXETINE [Concomitant]
     Active Substance: DULOXETINE
     Indication: Arthralgia
  8. CALCIUM\CHOLECALCIFEROL [Concomitant]
     Active Substance: CALCIUM\CHOLECALCIFEROL
     Indication: Mineral supplementation
     Route: 048
     Dates: start: 20221201
  9. DENOSUMAB [Concomitant]
     Active Substance: DENOSUMAB
     Indication: Metastases to bone
     Route: 058
     Dates: start: 20221201
  10. DIPYRONE [Concomitant]
     Active Substance: DIPYRONE
     Indication: Arthralgia
     Route: 048
     Dates: start: 20221201
  11. DIPYRONE [Concomitant]
     Active Substance: DIPYRONE
     Indication: Back pain
  12. DIPYRONE [Concomitant]
     Active Substance: DIPYRONE
     Indication: Arthralgia
  13. RIVAROXABAN [Concomitant]
     Active Substance: RIVAROXABAN
     Indication: Thrombosis prophylaxis
     Route: 048
     Dates: start: 20230517

REACTIONS (2)
  - Pneumonitis [Fatal]
  - Acute respiratory failure [Not Recovered/Not Resolved]

NARRATIVE: CASE EVENT DATE: 20230822
